FAERS Safety Report 24847912 (Version 5)
Quarter: 2025Q2

REPORT INFORMATION
  Report Type: Spontaneous
  Country: NL (occurrence: NL)
  Receive Date: 20250116
  Receipt Date: 20250605
  Transmission Date: 20250716
  Serious: Yes (Hospitalization, Other)
  Sender: BAUSCH AND LOMB
  Company Number: NL-JNJFOC-20250104680

PATIENT
  Age: 75 Year
  Sex: Male
  Weight: 86.4 kg

DRUGS (11)
  1. DEXAMETHASONE [Suspect]
     Active Substance: DEXAMETHASONE
     Indication: Product used for unknown indication
     Route: 065
  2. DARATUMUMAB [Suspect]
     Active Substance: DARATUMUMAB
     Indication: Plasma cell myeloma
     Route: 058
     Dates: start: 20241223
  3. DARATUMUMAB [Suspect]
     Active Substance: DARATUMUMAB
     Route: 058
     Dates: start: 20241216
  4. DARATUMUMAB [Suspect]
     Active Substance: DARATUMUMAB
     Route: 058
     Dates: start: 20241223
  5. DARATUMUMAB [Suspect]
     Active Substance: DARATUMUMAB
     Route: 058
     Dates: start: 20240106
  6. LENALIDOMIDE [Suspect]
     Active Substance: LENALIDOMIDE
     Indication: Product used for unknown indication
     Route: 065
  7. DICLOFENAC [Concomitant]
     Active Substance: DICLOFENAC
     Indication: Pain
     Route: 048
     Dates: start: 20241208, end: 20241225
  8. POLYETHYLENE GLYCOLS [Concomitant]
     Active Substance: POLYETHYLENE GLYCOLS
     Indication: Constipation
     Route: 048
     Dates: start: 20241217
  9. MORPHINE [Concomitant]
     Active Substance: MORPHINE
     Indication: Pain
     Route: 065
     Dates: start: 20241225, end: 20250114
  10. VALACYCLOVIR HYDROCHLORIDE [Concomitant]
     Active Substance: VALACYCLOVIR HYDROCHLORIDE
     Indication: Prophylaxis
     Route: 065
     Dates: start: 20241225, end: 20250114
  11. ACETAMINOPHEN [Concomitant]
     Active Substance: ACETAMINOPHEN
     Indication: Product used for unknown indication
     Route: 065
     Dates: start: 20241225, end: 20250114

REACTIONS (7)
  - Acute kidney injury [Recovered/Resolved]
  - Small intestinal haemorrhage [Recovered/Resolved]
  - Anaemia [Recovered/Resolved with Sequelae]
  - Constipation [Recovered/Resolved]
  - Malaise [Recovered/Resolved]
  - Respiratory syncytial virus infection [Recovered/Resolved]
  - Sinus tachycardia [Recovering/Resolving]

NARRATIVE: CASE EVENT DATE: 20241217
